FAERS Safety Report 11876180 (Version 1)
Quarter: 2015Q4

REPORT INFORMATION
  Report Type: Spontaneous
  Country: US (occurrence: US)
  Receive Date: 20151229
  Receipt Date: 20151229
  Transmission Date: 20160305
  Serious: No
  Sender: FDA-Public Use
  Company Number: US-AKRON, INC.-1045977

PATIENT

DRUGS (1)
  1. KETOROLAC [Suspect]
     Active Substance: KETOROLAC\KETOROLAC TROMETHAMINE

REACTIONS (5)
  - Eye pain [Unknown]
  - Visual acuity reduced [Unknown]
  - Corneal abrasion [Unknown]
  - Keratitis [None]
  - Eye irritation [Unknown]
